FAERS Safety Report 9216677 (Version 3)
Quarter: 2013Q1

REPORT INFORMATION
  Report Type: Spontaneous
  Country: IL (occurrence: None)
  Receive Date: 20130228
  Receipt Date: 20130318
  Transmission Date: 20140127
  Serious: Yes (Hospitalization)
  Sender: FDA-Public Use
  Company Number: SYM-2013-00927

PATIENT
  Age: 56 Year
  Sex: Female

DRUGS (12)
  1. 5-FU [Suspect]
     Indication: COLORECTAL CANCER METASTATIC
     Route: 040
     Dates: start: 20130101, end: 20130101
  2. LEUCOVORIN [Suspect]
     Indication: COLORECTAL CANCER METASTATIC
     Route: 042
     Dates: start: 20130101, end: 20130101
  3. IRINOTECAN [Suspect]
     Indication: COLORECTAL CANCER METASTATIC
     Route: 042
     Dates: start: 20130101, end: 20130101
  4. AFLIBERCEPT [Suspect]
     Indication: COLORECTAL CANCER METASTATIC
     Route: 042
     Dates: start: 20130101, end: 20130101
  5. HYDROCHLOROTHIAZIDE(HYDROCHLOROTHIAZIDE) (HYDROCHLOROTHIAZIDE) [Concomitant]
  6. LOPERAMIDE(LOPERAMIDE) (LOPERAMIDE) [Concomitant]
  7. ANTIEMETICS AND ANTINAUSEANTS(ANTIEMETICS AND ANTINAUSEANTS) [Concomitant]
  8. GASTRO(FAMOTIDINE) (FAMOTIDINE) [Concomitant]
  9. CORTICOSTEROIDS(CORTICOSTEROIDS) [Concomitant]
  10. ACE INHIBITOR NOS(ACE INHIBITORS) (NULL) [Concomitant]
  11. CITALOPRAM(CITALOPRAM) (CITALOPRAM) [Concomitant]
  12. SEROTONIN ANTAGONISTS(SEROTONIN ANTAGONISTS) [Concomitant]

REACTIONS (6)
  - Nausea [None]
  - Vomiting [None]
  - Diarrhoea [None]
  - Hypercalcaemia [None]
  - Blood alkaline phosphatase increased [None]
  - Blood phosphorus decreased [None]
